FAERS Safety Report 15462359 (Version 2)
Quarter: 2018Q4

REPORT INFORMATION
  Report Type: Spontaneous
  Country: US (occurrence: US)
  Receive Date: 20181004
  Receipt Date: 20181024
  Transmission Date: 20190204
  Serious: Yes (Hospitalization, Other)
  Sender: FDA-Public Use
  Company Number: US-ABBVIE-18K-163-2503535-00

PATIENT
  Sex: Male
  Weight: 67.65 kg

DRUGS (1)
  1. HUMIRA [Suspect]
     Active Substance: ADALIMUMAB
     Indication: PSORIASIS
     Route: 058
     Dates: start: 2010, end: 201710

REACTIONS (5)
  - B-cell lymphoma [Not Recovered/Not Resolved]
  - B-cell lymphoma [Unknown]
  - Prostate cancer [Not Recovered/Not Resolved]
  - Weight decreased [Unknown]
  - Life expectancy shortened [Unknown]

NARRATIVE: CASE EVENT DATE: 2017
